FAERS Safety Report 13825799 (Version 1)
Quarter: 2017Q3

REPORT INFORMATION
  Report Type: Spontaneous
  Country: DE (occurrence: DE)
  Receive Date: 20170802
  Receipt Date: 20170802
  Transmission Date: 20171127
  Serious: Yes (Other)
  Sender: FDA-Public Use
  Company Number: PHHY2017DE077585

PATIENT
  Age: 81 Year
  Sex: Female
  Weight: 52 kg

DRUGS (3)
  1. ZYKADIA [Suspect]
     Active Substance: CERITINIB
     Indication: LUNG ADENOCARCINOMA
     Dosage: UNK
     Route: 048
     Dates: start: 20151204, end: 20170216
  2. ZYKADIA [Suspect]
     Active Substance: CERITINIB
     Dosage: 450 MG, QD
     Route: 048
     Dates: start: 20170217, end: 20170310
  3. NPLATE [Concomitant]
     Active Substance: ROMIPLOSTIM
     Indication: IMMUNE THROMBOCYTOPENIC PURPURA
     Dosage: 250 UG, QW
     Route: 058
     Dates: start: 201510

REACTIONS (6)
  - Skin discolouration [Recovered/Resolved]
  - Haemorrhagic urticaria [Recovered/Resolved]
  - Purpura [Recovered/Resolved]
  - Skin erosion [Recovered/Resolved]
  - Peripheral swelling [Recovered/Resolved]
  - Chillblains [Unknown]

NARRATIVE: CASE EVENT DATE: 20170303
